FAERS Safety Report 8619065-6 (Version None)
Quarter: 2012Q3

REPORT INFORMATION
  Report Type: 
  Country: None (occurrence: None)
  Receive Date: 20120816
  Receipt Date: 20120816
  Transmission Date: 20120928
  Serious: Yes (Hospitalization)
  Sender: FDA-Public Use
  Company Number: None

PATIENT
  Sex: Female
  Weight: 102.27 kg

DRUGS (1)
  1. CARBOPLATIN [Suspect]
     Dosage: 325 MG

REACTIONS (6)
  - MYOCARDIAL INFARCTION [None]
  - ATRIAL FIBRILLATION [None]
  - VENTRICULAR EXTRASYSTOLES [None]
  - ANGIOPATHY [None]
  - HEART RATE INCREASED [None]
  - URINARY TRACT INFECTION [None]
